FAERS Safety Report 7740602-8 (Version None)
Quarter: 2011Q3

REPORT INFORMATION
  Report Type: 
  Country: None (occurrence: None)
  Receive Date: 20110909
  Receipt Date: 20110901
  Transmission Date: 20111222
  Serious: Yes (Other)
  Sender: FDA-Public Use
  Company Number: US-ELI_LILLY_AND_COMPANY-US201109001627

PATIENT
  Sex: Female

DRUGS (3)
  1. XANAX [Concomitant]
  2. EFFIENT [Suspect]
     Dosage: UNK, UNKNOWN
  3. ASPIRIN [Concomitant]

REACTIONS (4)
  - MEMORY IMPAIRMENT [None]
  - SURGERY [None]
  - ILL-DEFINED DISORDER [None]
  - BLOOD GLUCOSE ABNORMAL [None]
